FAERS Safety Report 8506528-7 (Version None)
Quarter: 2012Q3

REPORT INFORMATION
  Report Type: 
  Country: None (occurrence: None)
  Receive Date: 20120712
  Receipt Date: 20120424
  Transmission Date: 20120928
  Serious: No
  Sender: FDA-Public Use
  Company Number: US-GLAXOSMITHKLINE-A0974969A

PATIENT
  Age: 72 Year
  Sex: Male

DRUGS (4)
  1. JALYN [Suspect]
     Indication: BENIGN PROSTATIC HYPERPLASIA
     Dosage: .5MG PER DAY
     Route: 048
     Dates: start: 20120417, end: 20120417
  2. AMLODIPINE [Concomitant]
  3. LEVOTHYROXINE SODIUM [Concomitant]
  4. LOSARTAN POTASSIUM [Concomitant]

REACTIONS (7)
  - VOMITING [None]
  - MUSCULAR WEAKNESS [None]
  - NAUSEA [None]
  - ASTHENIA [None]
  - HYPOTENSION [None]
  - FEAR [None]
  - GAIT DISTURBANCE [None]
